FAERS Safety Report 4845855-1 (Version None)
Quarter: 2005Q4

REPORT INFORMATION
  Report Type: 
  Country: None (occurrence: None)
  Receive Date: 20051206
  Receipt Date: 20051201
  Transmission Date: 20060501
  Serious: Yes (Other)
  Sender: FDA-Public Use
  Company Number: 2005023706

PATIENT
  Age: 23 Year
  Sex: Male
  Weight: 80 kg

DRUGS (5)
  1. SEROXAT [Suspect]
     Dosage: 240MG SINGLE DOSE
     Route: 048
  2. BIPERIDEN RETARD [Suspect]
     Dosage: 6TAB SINGLE DOSE
     Route: 048
  3. LORAZEPAM [Suspect]
     Dosage: 1TAB SINGLE DOSE
     Route: 048
  4. PERAZIN [Suspect]
     Dosage: 1800MG SINGLE DOSE
     Route: 048
  5. SEROQUEL [Suspect]
     Dosage: 1800MG SINGLE DOSE
     Route: 048

REACTIONS (3)
  - FATIGUE [None]
  - INTENTIONAL OVERDOSE [None]
  - SUICIDE ATTEMPT [None]
